FAERS Safety Report 20805875 (Version 1)
Quarter: 2022Q2

REPORT INFORMATION
  Report Type: Spontaneous
  Country: US (occurrence: US)
  Receive Date: 20220510
  Receipt Date: 20220510
  Transmission Date: 20220721
  Serious: No
  Sender: FDA-Public Use
  Company Number: US-ALLERGAN-2204793US

PATIENT
  Age: 52 Year
  Sex: Female

DRUGS (1)
  1. VUITY [Suspect]
     Active Substance: PILOCARPINE HYDROCHLORIDE
     Indication: Presbyopia
     Dosage: 1 GTT, QD
     Route: 047
     Dates: start: 20220104, end: 20220105

REACTIONS (2)
  - Accommodation disorder [Recovered/Resolved]
  - Visual impairment [Recovered/Resolved]

NARRATIVE: CASE EVENT DATE: 20220104
